FAERS Safety Report 10885123 (Version 1)
Quarter: 2015Q1

REPORT INFORMATION
  Report Type: Spontaneous
  Country: GB (occurrence: GB)
  Receive Date: 20150304
  Receipt Date: 20150304
  Transmission Date: 20150721
  Serious: Yes (Other)
  Sender: FDA-Public Use
  Company Number: GB-SA-2015SA025782

PATIENT
  Age: 37 Year
  Sex: Female

DRUGS (1)
  1. LANTUS [Suspect]
     Active Substance: INSULIN GLARGINE
     Indication: TYPE 1 DIABETES MELLITUS
     Dosage: DOSE:44 UNIT(S)
     Route: 065

REACTIONS (7)
  - Muscle spasms [Unknown]
  - Weight increased [Unknown]
  - Fatigue [Unknown]
  - Shock hypoglycaemic [Unknown]
  - Abdominal distension [Unknown]
  - Injection site irritation [Unknown]
  - Constipation [Unknown]
